FAERS Safety Report 7927297-5 (Version None)
Quarter: 2011Q4

REPORT INFORMATION
  Report Type: 
  Country: None (occurrence: None)
  Receive Date: 20111118
  Receipt Date: 20111109
  Transmission Date: 20120403
  Serious: Yes (Other)
  Sender: FDA-Public Use
  Company Number: PHEH2011US009090

PATIENT
  Sex: Male

DRUGS (1)
  1. AREDIA [Suspect]
     Indication: MULTIPLE MYELOMA
     Dosage: 60 MG, QMO

REACTIONS (5)
  - PYREXIA [None]
  - EPIDIDYMITIS [None]
  - TESTICULAR PAIN [None]
  - PAIN [None]
  - ARTHRALGIA [None]
